FAERS Safety Report 13031032 (Version 2)
Quarter: 2020Q3

REPORT INFORMATION
  Report Type: Spontaneous
  Country: US (occurrence: CA)
  Receive Date: 20161215
  Receipt Date: 20200722
  Transmission Date: 20201102
  Serious: Yes (Other)
  Sender: FDA-Public Use
  Company Number: CA-ALLERGAN-1000083354

PATIENT
  Sex: Female
  Weight: 69.39 kg

DRUGS (7)
  1. SAPHRIS [Suspect]
     Active Substance: ASENAPINE MALEATE
     Indication: PRODUCT USED FOR UNKNOWN INDICATION
     Dosage: 10 MG, BID
     Route: 065
     Dates: start: 20150527, end: 20150609
  2. ZYPREXA [Suspect]
     Active Substance: OLANZAPINE
     Indication: PRODUCT USED FOR UNKNOWN INDICATION
     Dosage: UNK, UNKNOWN
     Route: 065
  3. ATIVAN [Concomitant]
     Active Substance: LORAZEPAM
     Indication: PRODUCT USED FOR UNKNOWN INDICATION
     Dosage: 1.5 MG, QD
     Route: 065
  4. SAPHRIS [Suspect]
     Active Substance: ASENAPINE MALEATE
     Dosage: 5 MG, QD
     Route: 065
     Dates: start: 20150519, end: 20150526
  5. LATUDA [Suspect]
     Active Substance: LURASIDONE HYDROCHLORIDE
     Dosage: 40 MG, QD
     Route: 048
     Dates: start: 201502, end: 201505
  6. LATUDA [Suspect]
     Active Substance: LURASIDONE HYDROCHLORIDE
     Indication: BIPOLAR DISORDER
     Dosage: 30 MG, QD
     Route: 048
  7. EPIVAL [Concomitant]
     Active Substance: DIVALPROEX SODIUM
     Indication: PRODUCT USED FOR UNKNOWN INDICATION
     Dosage: UNK, UNKNOWN
     Route: 065

REACTIONS (3)
  - Blood creatinine increased [Not Recovered/Not Resolved]
  - Drug-induced liver injury [Not Recovered/Not Resolved]
  - Akathisia [Recovering/Resolving]

NARRATIVE: CASE EVENT DATE: 201502
